FAERS Safety Report 23575190 (Version 1)
Quarter: 2024Q1

REPORT INFORMATION
  Report Type: Other
  Country: RO (occurrence: RO)
  Receive Date: 20240228
  Receipt Date: 20240228
  Transmission Date: 20240410
  Serious: Yes (Other)
  Sender: FDA-Public Use
  Company Number: RO-B.Braun Medical Inc.-2153784

PATIENT
  Age: 8 Year
  Sex: Male

DRUGS (4)
  1. MEROPENEM [Suspect]
     Active Substance: MEROPENEM
  2. FLUCONAZOLE [Suspect]
     Active Substance: FLUCONAZOLE
  3. GENTAMICIN [Suspect]
     Active Substance: GENTAMICIN
  4. TERBINAFINE [Suspect]
     Active Substance: TERBINAFINE

REACTIONS (4)
  - Tinea capitis [Recovered/Resolved with Sequelae]
  - Off label use [Recovered/Resolved with Sequelae]
  - Rash erythematous [Recovered/Resolved with Sequelae]
  - Condition aggravated [Recovered/Resolved with Sequelae]
